FAERS Safety Report 8840063 (Version 1)
Quarter: 2012Q4

REPORT INFORMATION
  Report Type: 
  Country: US (occurrence: US)
  Receive Date: 20121015
  Receipt Date: 20121015
  Transmission Date: 20130627
  Serious: No
  Sender: FDA-Public Use
  Company Number: US-PFIZER INC-2012253717

PATIENT
  Age: 62 Year
  Sex: Male
  Weight: 81.63 kg

DRUGS (8)
  1. VENLAFAXINE HYDROCHLORIDE [Suspect]
     Indication: BIPOLAR DISORDER
     Dosage: 300 mg, daily
     Dates: start: 201209
  2. LOTENSIN [Concomitant]
     Dosage: 20 mg, daily
  3. ATENOLOL [Concomitant]
     Indication: BLOOD PRESSURE ABNORMAL
     Dosage: UNK, 2x/day
  4. ATENOLOL [Concomitant]
     Indication: HEART RATE INCREASED
  5. AMITRIPTYLINE [Concomitant]
     Indication: SLEEP DISORDER
     Dosage: 25 mg, daily
  6. TERAZOSIN [Concomitant]
     Indication: MICTURITION DISORDER
     Dosage: 10 mg, daily,  at night
  7. METFORMIN [Concomitant]
     Indication: DIABETES MELLITUS
     Dosage: 1000 mg, 2x/day
  8. EFEXOR XR [Concomitant]
     Indication: BIPOLAR DISORDER
     Dosage: 300 mg, daily
     Dates: end: 201209

REACTIONS (4)
  - Intentional drug misuse [Unknown]
  - Disturbance in attention [Unknown]
  - Irritability [Unknown]
  - Feeling abnormal [Unknown]
